FAERS Safety Report 8199048-3 (Version None)
Quarter: 2012Q1

REPORT INFORMATION
  Report Type: 
  Country: None (occurrence: None)
  Receive Date: 20120309
  Receipt Date: 20120302
  Transmission Date: 20120608
  Serious: Yes (Death)
  Sender: FDA-Public Use
  Company Number: JP-GLAXOSMITHKLINE-B0738236A

PATIENT
  Sex: Female
  Weight: 41 kg

DRUGS (7)
  1. PROMACTA [Suspect]
     Dosage: 25MG PER DAY
     Route: 048
     Dates: start: 20110414, end: 20110626
  2. PROMACTA [Suspect]
     Indication: IDIOPATHIC THROMBOCYTOPENIC PURPURA
     Dosage: 12.5MG TWICE PER DAY
     Route: 048
     Dates: start: 20101220
  3. PREDNISOLONE [Concomitant]
     Dosage: 20MG PER DAY
     Dates: start: 20110620, end: 20110706
  4. PROMACTA [Suspect]
     Dosage: 37.5MG PER DAY
     Route: 048
     Dates: start: 20110627, end: 20110706
  5. PROMACTA [Suspect]
     Dosage: 37.5MG TWICE PER DAY
     Route: 048
     Dates: start: 20110331, end: 20110413
  6. PREDNISOLONE [Concomitant]
     Dosage: 20MG PER DAY
     Route: 048
     Dates: start: 20110406, end: 20110619
  7. PREDNISOLONE [Concomitant]
     Indication: IDIOPATHIC THROMBOCYTOPENIC PURPURA
     Dosage: 10MG PER DAY
     Route: 048

REACTIONS (2)
  - WHITE BLOOD CELL MORPHOLOGY ABNORMAL [None]
  - MULTI-ORGAN FAILURE [None]
